FAERS Safety Report 8491629-2 (Version None)
Quarter: 2012Q3

REPORT INFORMATION
  Report Type: 
  Country: None (occurrence: None)
  Receive Date: 20120706
  Receipt Date: 20120625
  Transmission Date: 20120928
  Serious: Yes (Hospitalization)
  Sender: FDA-Public Use
  Company Number: FR-CELGENEUS-056-C5013-12063498

PATIENT
  Sex: Male
  Weight: 75 kg

DRUGS (10)
  1. LENALIDOMIDE [Suspect]
     Route: 048
     Dates: end: 20101005
  2. DEXAMETHASONE [Suspect]
     Indication: MULTIPLE MYELOMA
     Dosage: 40 MILLIGRAM
     Route: 065
     Dates: start: 20090611
  3. LENALIDOMIDE [Suspect]
     Indication: MULTIPLE MYELOMA
     Dosage: 25 MILLIGRAM
     Route: 048
     Dates: start: 20090611
  4. LASIX [Concomitant]
     Dosage: 40 MILLIGRAM
     Route: 048
     Dates: start: 20110322
  5. PERINDOPRIL ERBUMINE [Concomitant]
     Dosage: 10 MILLIGRAM
     Route: 048
     Dates: start: 20110301
  6. FLECAINIDE ACETATE [Concomitant]
     Indication: ARRHYTHMIA
     Route: 065
  7. DEXAMETHASONE [Suspect]
     Route: 065
     Dates: end: 20101002
  8. ACETAMINOPHEN [Concomitant]
     Route: 048
     Dates: start: 20110601
  9. CORDARONE [Concomitant]
     Dosage: 200 MILLIGRAM
     Route: 048
     Dates: start: 20110301
  10. ASPIRIN [Concomitant]
     Indication: THROMBOSIS PROPHYLAXIS
     Dosage: 75 MILLIGRAM
     Route: 048
     Dates: start: 20101124

REACTIONS (1)
  - PROSTATE CANCER [None]
